FAERS Safety Report 6529015-4 (Version None)
Quarter: 2009Q4

REPORT INFORMATION
  Report Type: 
  Country: None (occurrence: None)
  Receive Date: 20091229
  Receipt Date: 20091019
  Transmission Date: 20100525
  Serious: Yes (Congenital Anomaly)
  Sender: FDA-Public Use
  Company Number: 003205

PATIENT
  Age: 4 Year
  Sex: Male

DRUGS (4)
  1. PREDNISOLONE [Suspect]
  2. NIFEDIPINE [Suspect]
  3. ATENOLOL [Suspect]
  4. CYCLOSPORINE [Suspect]

REACTIONS (14)
  - CAESAREAN SECTION [None]
  - COORDINATION ABNORMAL [None]
  - CREATINE URINE INCREASED [None]
  - DYSARTHRIA [None]
  - DYSKINESIA OESOPHAGEAL [None]
  - DYSMORPHISM [None]
  - FEEDING DISORDER NEONATAL [None]
  - GAIT DISTURBANCE [None]
  - HYPOTONIA [None]
  - MATERNAL DRUGS AFFECTING FOETUS [None]
  - MENTAL RETARDATION [None]
  - MUSCLE DISORDER [None]
  - SPEECH DISORDER DEVELOPMENTAL [None]
  - STEREOTYPY [None]
